FAERS Safety Report 7766461-5 (Version None)
Quarter: 2011Q3

REPORT INFORMATION
  Report Type: 
  Country: None (occurrence: None)
  Receive Date: 20110922
  Receipt Date: 20110914
  Transmission Date: 20111222
  Serious: No
  Sender: FDA-Public Use
  Company Number: US-BIOGENIDEC-2011BI035515

PATIENT
  Age: 38 Year
  Sex: Male

DRUGS (2)
  1. TYSABRI [Suspect]
     Indication: MULTIPLE SCLEROSIS
     Route: 042
     Dates: start: 20070912
  2. SODIUM METAROL (NOS) [Concomitant]
     Indication: IRIS HYPOPIGMENTATION

REACTIONS (2)
  - MUSCULOSKELETAL STIFFNESS [None]
  - ASTHENIA [None]
